FAERS Safety Report 6847612-3 (Version None)
Quarter: 2010Q3

REPORT INFORMATION
  Report Type: 
  Country: None (occurrence: None)
  Receive Date: 20100716
  Receipt Date: 20100702
  Transmission Date: 20110219
  Serious: No
  Sender: FDA-Public Use
  Company Number: PHHY2010US41696

PATIENT
  Sex: Male

DRUGS (11)
  1. TASIGNA [Suspect]
     Indication: MYELOID LEUKAEMIA
     Dosage: 400 MG, Q12H
     Route: 048
     Dates: start: 20090412
  2. TASIGNA [Suspect]
     Dosage: 200 MG, Q12H
     Route: 048
  3. DIOVAN [Concomitant]
     Dosage: UNK
  4. LASIX [Concomitant]
     Indication: OEDEMA PERIPHERAL
     Dosage: UNK
  5. TOPROL-XL [Concomitant]
     Dosage: UNK
  6. MULTI-VITAMIN [Concomitant]
     Indication: SUPPLEMENTATION THERAPY
     Dosage: UNK
  7. ASPIRIN [Concomitant]
     Dosage: UNK
  8. ALDACTONE [Concomitant]
     Dosage: UNK
  9. ALLOPURINOL [Concomitant]
     Dosage: UNK
  10. KLOR-CON [Concomitant]
     Indication: BLOOD POTASSIUM DECREASED
     Dosage: UNK
  11. WARFARIN SODIUM [Concomitant]
     Dosage: UNK

REACTIONS (2)
  - ANAEMIA [None]
  - THROMBOCYTOPENIA [None]
